FAERS Safety Report 21709842 (Version 3)
Quarter: 2023Q1

REPORT INFORMATION
  Report Type: Spontaneous
  Country: US (occurrence: US)
  Receive Date: 20221210
  Receipt Date: 20230208
  Transmission Date: 20230418
  Serious: No
  Sender: FDA-Public Use
  Company Number: US-ORGANON-O2211USA002287

PATIENT
  Age: 14 Year
  Sex: Female
  Weight: 51.701 kg

DRUGS (1)
  1. NEXPLANON [Suspect]
     Active Substance: ETONOGESTREL
     Dosage: 1 IMPLANT; ONE EVERY THREE YEARS, LEFT UPPER ARM
     Route: 059
     Dates: start: 20210519, end: 20221123

REACTIONS (2)
  - Device breakage [Recovered/Resolved]
  - No adverse event [Unknown]

NARRATIVE: CASE EVENT DATE: 20221123
